FAERS Safety Report 20318846 (Version 2)
Quarter: 2022Q1

REPORT INFORMATION
  Report Type: Spontaneous
  Country: SK (occurrence: CZ)
  Receive Date: 20220110
  Receipt Date: 20220315
  Transmission Date: 20220424
  Serious: Yes (Other)
  Sender: FDA-Public Use
  Company Number: SK-NOVARTISPH-NVSC2022CZ001974

PATIENT
  Age: 52 Year
  Sex: Male

DRUGS (3)
  1. TISAGENLECLEUCEL [Suspect]
     Active Substance: TISAGENLECLEUCEL
     Indication: Diffuse large B-cell lymphoma refractory
     Dosage: UNK
     Route: 065
     Dates: start: 202005
  2. GEMCITABINE [Concomitant]
     Active Substance: GEMCITABINE
     Indication: Diffuse large B-cell lymphoma refractory
     Dosage: (BRIDGING TREATMENT)
     Route: 042
  3. DOCETAXEL [Concomitant]
     Active Substance: DOCETAXEL
     Indication: Diffuse large B-cell lymphoma refractory
     Dosage: (BRIDGING TREATMENT)
     Route: 042

REACTIONS (7)
  - Distributive shock [Recovered/Resolved]
  - Acute respiratory failure [Recovered/Resolved]
  - Infection [Recovered/Resolved]
  - Cytokine release syndrome [Recovered/Resolved]
  - Neurotoxicity [Recovered/Resolved]
  - Pancytopenia [Unknown]
  - Hypogammaglobulinaemia [Unknown]
